FAERS Safety Report 14167135 (Version 1)
Quarter: 2017Q4

REPORT INFORMATION
  Report Type: Spontaneous
  Country: US (occurrence: US)
  Receive Date: 20171107
  Receipt Date: 20171107
  Transmission Date: 20180321
  Serious: Yes (Death)
  Sender: FDA-Public Use
  Company Number: US-INDIVIOR LIMITED-INDV-105896-2017

PATIENT
  Sex: Male
  Weight: 122.45 kg

DRUGS (1)
  1. SUBOXONE [Suspect]
     Active Substance: BUPRENORPHINE HYDROCHLORIDE\NALOXONE HYDROCHLORIDE
     Indication: PRODUCT USED FOR UNKNOWN INDICATION
     Dosage: FOUR FILMS PER DAY
     Route: 065
     Dates: end: 2012

REACTIONS (2)
  - Prescribed overdose [Recovered/Resolved]
  - Death [Fatal]

NARRATIVE: CASE EVENT DATE: 2012
